FAERS Safety Report 14778201 (Version 2)
Quarter: 2019Q4

REPORT INFORMATION
  Report Type: Spontaneous
  Country: US (occurrence: US)
  Receive Date: 20180419
  Receipt Date: 20191126
  Transmission Date: 20200122
  Serious: No
  Sender: FDA-Public Use
  Company Number: US-BIOGEN-2018BI00548280

PATIENT
  Age: 48 Year
  Sex: Male

DRUGS (1)
  1. SPINRAZA [Suspect]
     Active Substance: NUSINERSEN
     Indication: SPINAL MUSCULAR ATROPHY
     Route: 050
     Dates: start: 20180320

REACTIONS (3)
  - Tinnitus [Recovered/Resolved]
  - Headache [Recovered/Resolved]
  - Ear congestion [Recovered/Resolved]

NARRATIVE: CASE EVENT DATE: 201803
